FAERS Safety Report 5835584-X (Version None)
Quarter: 2008Q3

REPORT INFORMATION
  Report Type: 
  Country: None (occurrence: None)
  Receive Date: 20080806
  Receipt Date: 20080804
  Transmission Date: 20090109
  Serious: Yes (Death, Other)
  Sender: FDA-Public Use
  Company Number: GB-ASTRAZENECA-2008GB01485

PATIENT
  Age: 64 Year
  Sex: Female

DRUGS (1)
  1. SEROQUEL [Suspect]
     Indication: BIPOLAR DISORDER
     Dosage: DURATION OF TREATMENT THREE AND A HALF MONTHS
     Route: 048

REACTIONS (3)
  - DEATH [None]
  - FALL [None]
  - PARKINSONISM [None]
